FAERS Safety Report 18777819 (Version 1)
Quarter: 2021Q1

REPORT INFORMATION
  Report Type: Spontaneous
  Country: US (occurrence: US)
  Receive Date: 20210122
  Receipt Date: 20210122
  Transmission Date: 20210419
  Serious: No
  Sender: FDA-Public Use
  Company Number: 2020SGN04020

PATIENT
  Sex: Female

DRUGS (3)
  1. CAPECITABINE. [Concomitant]
     Active Substance: CAPECITABINE
     Indication: BREAST CANCER FEMALE
  2. TUKYSA [Suspect]
     Active Substance: TUCATINIB
     Indication: BREAST CANCER FEMALE
     Dosage: UNK
  3. KLONOPIN [Concomitant]
     Active Substance: CLONAZEPAM

REACTIONS (15)
  - Coccydynia [Unknown]
  - Platelet count decreased [Unknown]
  - Neoplasm malignant [Unknown]
  - Nausea [Unknown]
  - Unevaluable event [Unknown]
  - Vitreous floaters [Unknown]
  - Product dose omission issue [Unknown]
  - Hypertension [Unknown]
  - Anxiety [Unknown]
  - Vomiting [Unknown]
  - Back pain [Unknown]
  - Constipation [Unknown]
  - Diarrhoea [Recovered/Resolved]
  - Diplopia [Unknown]
  - Stress [Unknown]
